FAERS Safety Report 20495700 (Version 1)
Quarter: 2022Q1

REPORT INFORMATION
  Report Type: Spontaneous
  Country: US (occurrence: US)
  Receive Date: 20220221
  Receipt Date: 20220221
  Transmission Date: 20220423
  Serious: No
  Sender: FDA-Public Use
  Company Number: US-PERRIGO-21US024765

PATIENT
  Age: 5 Year
  Sex: Male

DRUGS (1)
  1. IBUPROFEN [Suspect]
     Active Substance: IBUPROFEN
     Indication: Headache
     Dosage: UNKNOWN, SINGLE
     Route: 048
     Dates: start: 202109, end: 202109

REACTIONS (1)
  - Retching [Unknown]

NARRATIVE: CASE EVENT DATE: 20210901
